FAERS Safety Report 16773146 (Version 2)
Quarter: 2019Q3

REPORT INFORMATION
  Report Type: Spontaneous
  Country: US (occurrence: US)
  Receive Date: 20190904
  Receipt Date: 20190918
  Transmission Date: 20191005
  Serious: Yes (Other)
  Sender: FDA-Public Use
  Company Number: US-INDIVIOR EUROPE LIMITED-INDV-120755-2019

PATIENT
  Age: 32 Year
  Sex: Male

DRUGS (4)
  1. SUBOXONE [Suspect]
     Active Substance: BUPRENORPHINE HYDROCHLORIDE\NALOXONE HYDROCHLORIDE
     Indication: DRUG DEPENDENCE
     Dosage: 4MG, TWICE DAILY
     Route: 048
     Dates: start: 20180312, end: 20180405
  2. SUBOXONE [Suspect]
     Active Substance: BUPRENORPHINE HYDROCHLORIDE\NALOXONE HYDROCHLORIDE
     Dosage: 10 MILLIGRAM (ONE FILM IN THE MORNING, ONE FILM IN THE AFTERNOON AND A HALF A FILM IN THE EVENING)
     Route: 060
     Dates: start: 20190509
  3. SUBOXONE [Suspect]
     Active Substance: BUPRENORPHINE HYDROCHLORIDE\NALOXONE HYDROCHLORIDE
     Dosage: HALF FILM, TWICE A DAY (4MG) + HALF IN AFTERNOON (2MG)
     Route: 048
     Dates: start: 20180406, end: 20180723
  4. SUBOXONE [Suspect]
     Active Substance: BUPRENORPHINE HYDROCHLORIDE\NALOXONE HYDROCHLORIDE
     Dosage: 4MG, TWICE DAILY
     Route: 048
     Dates: start: 20180724

REACTIONS (8)
  - Wrong technique in product usage process [Not Recovered/Not Resolved]
  - Anxiety [Unknown]
  - Psychotic disorder [Unknown]
  - Delusion [Recovered/Resolved]
  - Dehydration [Unknown]
  - Intentional underdose [Recovered/Resolved]
  - Schizoaffective disorder [Unknown]
  - Inappropriate schedule of product administration [Not Recovered/Not Resolved]

NARRATIVE: CASE EVENT DATE: 20180312
